FAERS Safety Report 26123030 (Version 1)
Quarter: 2025Q4

REPORT INFORMATION
  Report Type: Spontaneous
  Country: GB (occurrence: GB)
  Receive Date: 20251204
  Receipt Date: 20251204
  Transmission Date: 20260117
  Serious: Yes (Hospitalization, Other)
  Sender: PFIZER
  Company Number: None

PATIENT
  Age: 78 Year
  Sex: Male
  Weight: 83 kg

DRUGS (6)
  1. SPIRONOLACTONE [Suspect]
     Active Substance: SPIRONOLACTONE
     Indication: Hypertension
     Dosage: 25 MG, 1X/DAY
     Dates: start: 20251104, end: 20251120
  2. HUMALOG [Concomitant]
     Active Substance: INSULIN LISPRO
     Indication: Type 1 diabetes mellitus
     Dosage: UNK
     Dates: start: 20130801
  3. LANTUS [Concomitant]
     Active Substance: INSULIN GLARGINE
     Indication: Type 1 diabetes mellitus
     Dosage: UNK
     Dates: start: 20030430
  4. ACETAMINOPHEN [Concomitant]
     Active Substance: ACETAMINOPHEN
     Indication: Osteoarthritis
     Dosage: UNK
     Dates: start: 20040218
  5. HYPROMELLOSES [Concomitant]
     Active Substance: HYPROMELLOSES
     Indication: Dry eye
     Dosage: UNK
     Dates: start: 20231012
  6. ENBREL [Concomitant]
     Active Substance: ETANERCEPT
     Indication: Rheumatoid arthritis
     Dosage: UNK
     Dates: start: 20241107

REACTIONS (5)
  - Hyponatraemia [Recovering/Resolving]
  - Headache [Unknown]
  - Blood pressure increased [Unknown]
  - Dizziness [Unknown]
  - Confusional state [Unknown]

NARRATIVE: CASE EVENT DATE: 20251101
